FAERS Safety Report 10890843 (Version 1)
Quarter: 2015Q1

REPORT INFORMATION
  Report Type: Report from Study
  Country: BE (occurrence: BE)
  Receive Date: 20150305
  Receipt Date: 20150305
  Transmission Date: 20150721
  Serious: Yes (Other)
  Sender: FDA-Public Use
  Company Number: BE-ROCHE-1546032

PATIENT

DRUGS (3)
  1. CAPECITABINE. [Suspect]
     Active Substance: CAPECITABINE
     Indication: GASTRIC CANCER
     Route: 048
  2. DOCETAXEL. [Suspect]
     Active Substance: DOCETAXEL
     Indication: GASTRIC CANCER
     Dosage: ON D1
     Route: 065
  3. OXALIPLATIN. [Suspect]
     Active Substance: OXALIPLATIN
     Indication: GASTRIC CANCER
     Dosage: ON DAY 1
     Route: 065

REACTIONS (23)
  - Leukopenia [Unknown]
  - Thrombocytopenia [Unknown]
  - Diarrhoea [Unknown]
  - Cough [Unknown]
  - General physical health deterioration [Unknown]
  - Neutropenia [Unknown]
  - Vomiting [Unknown]
  - Abdominal pain [Unknown]
  - Dysphagia [Unknown]
  - Dizziness [Unknown]
  - Palmar-plantar erythrodysaesthesia syndrome [Unknown]
  - Peripheral sensory neuropathy [Unknown]
  - Back pain [Unknown]
  - Alopecia [Unknown]
  - Decreased appetite [Unknown]
  - Mucosal inflammation [Unknown]
  - Dyspnoea [Unknown]
  - Anaemia [Unknown]
  - Asthenia [Unknown]
  - Febrile neutropenia [Unknown]
  - Nausea [Unknown]
  - Fatigue [Unknown]
  - Nail disorder [Unknown]
